FAERS Safety Report 6072830-4 (Version None)
Quarter: 2009Q1

REPORT INFORMATION
  Report Type: 
  Country: None (occurrence: None)
  Receive Date: 20090210
  Receipt Date: 20090202
  Transmission Date: 20090719
  Serious: Yes (Life-Threatening)
  Sender: FDA-Public Use
  Company Number: GB-BAUSCH-2009BL000457

PATIENT
  Age: 52 Year
  Sex: Female

DRUGS (7)
  1. DEXAMETHASONE TAB [Suspect]
     Indication: ANTIEMETIC SUPPORTIVE CARE
     Route: 042
     Dates: start: 20081231, end: 20081231
  2. ATRACURIUM [Suspect]
     Indication: MUSCLE RELAXANT THERAPY
     Route: 042
     Dates: start: 20081231, end: 20081231
  3. DICLOFENAC [Suspect]
     Route: 042
     Dates: start: 20081231, end: 20081231
  4. FENTANYL-75 [Suspect]
     Route: 042
     Dates: start: 20081231, end: 20081231
  5. MORPHINE [Suspect]
     Route: 042
     Dates: start: 20081231, end: 20081231
  6. ONDANSETRON [Suspect]
     Indication: ANTIEMETIC SUPPORTIVE CARE
     Route: 042
     Dates: start: 20081231, end: 20081231
  7. PROPOFOL-LIPURO /SWE/ [Suspect]
     Indication: ANAESTHESIA
     Route: 042
     Dates: start: 20081231, end: 20081231

REACTIONS (1)
  - ANAPHYLACTIC SHOCK [None]
